FAERS Safety Report 9338064 (Version 3)
Quarter: 2015Q1

REPORT INFORMATION
  Report Type: Spontaneous
  Country: US (occurrence: US)
  Receive Date: 20130610
  Receipt Date: 20150130
  Transmission Date: 20150721
  Serious: Yes (Other)
  Sender: FDA-Public Use
  Company Number: US-ROCHE-785814

PATIENT
  Age: 24 Year
  Sex: Female
  Weight: 59.02 kg

DRUGS (1)
  1. ACCUTANE [Suspect]
     Active Substance: ISOTRETINOIN
     Indication: ACNE
     Route: 065
     Dates: start: 19940219, end: 199407

REACTIONS (8)
  - Lip dry [Unknown]
  - Irritable bowel syndrome [Unknown]
  - Inflammatory bowel disease [Unknown]
  - Dry eye [Unknown]
  - Large intestine polyp [Unknown]
  - Dry skin [Unknown]
  - Colitis ulcerative [Unknown]
  - Depression [Unknown]

NARRATIVE: CASE EVENT DATE: 19940608
